FAERS Safety Report 6434664-8 (Version None)
Quarter: 2009Q4

REPORT INFORMATION
  Report Type: 
  Country: None (occurrence: None)
  Receive Date: 20091109
  Receipt Date: 20091109
  Transmission Date: 20100525
  Serious: Yes (Life-Threatening)
  Sender: FDA-Public Use
  Company Number: None

PATIENT
  Age: 36 Year
  Sex: Female
  Weight: 80.2867 kg

DRUGS (2)
  1. QVAR 80 [Suspect]
     Indication: ASTHMA
     Dosage: 1 PUFF 2X DAILY INHAL
     Route: 055
     Dates: start: 20091012, end: 20091017
  2. PROAIR HFA [Suspect]
     Indication: ASTHMA
     Dosage: 2 PUFFS 4-6 HOURS INHAL
     Route: 055
     Dates: start: 20091012, end: 20091017

REACTIONS (6)
  - ASTHMA [None]
  - FEELING ABNORMAL [None]
  - INFLAMMATION [None]
  - LUNG DISORDER [None]
  - PNEUMONIA [None]
  - PRODUCT SUBSTITUTION ISSUE [None]
